FAERS Safety Report 18822391 (Version 5)
Quarter: 2021Q2

REPORT INFORMATION
  Report Type: Spontaneous
  Country: DE (occurrence: DE)
  Receive Date: 20210202
  Receipt Date: 20210414
  Transmission Date: 20210717
  Serious: Yes (Congenital Anomaly, Other)
  Sender: FDA-Public Use
  Company Number: NVSC2021DE021577

PATIENT

DRUGS (4)
  1. BISOPROLOL [Suspect]
     Active Substance: BISOPROLOL
     Indication: FOETAL EXPOSURE DURING PREGNANCY
     Dosage: MATERNAL DOSE: UNK
     Route: 064
  2. IVABRADINE [Suspect]
     Active Substance: IVABRADINE
     Indication: FOETAL EXPOSURE DURING PREGNANCY
     Dosage: MATERNAL DOSE: 15 MG QD
     Route: 064
  3. IVABRADINE [Suspect]
     Active Substance: IVABRADINE
     Dosage: MATERNAL DOSE: 5 MG
     Route: 064
  4. METOPROLOL. [Suspect]
     Active Substance: METOPROLOL
     Indication: FOETAL EXPOSURE DURING PREGNANCY
     Dosage: MATERNAL DOSE: UNK
     Route: 064

REACTIONS (8)
  - Cleft palate [Unknown]
  - Cardiac hypertrophy [Unknown]
  - Atrial septal defect [Recovered/Resolved]
  - Hypertrophic cardiomyopathy [Unknown]
  - Large for dates baby [Unknown]
  - Premature baby [Unknown]
  - Cardiac septal hypertrophy [Unknown]
  - Foetal exposure during pregnancy [Unknown]
